FAERS Safety Report 10637865 (Version 2)
Quarter: 2015Q1

REPORT INFORMATION
  Report Type: Spontaneous
  Country: US (occurrence: US)
  Receive Date: 20141208
  Receipt Date: 20150202
  Transmission Date: 20150720
  Serious: No
  Sender: FDA-Public Use
  Company Number: US-GLAXOSMITHKLINE-US2014GSK032655

PATIENT
  Sex: Female

DRUGS (4)
  1. LAMICTAL [Suspect]
     Active Substance: LAMOTRIGINE
     Indication: SEIZURE
  2. LAMICTAL [Suspect]
     Active Substance: LAMOTRIGINE
     Indication: DEPRESSION
     Dosage: 200 MG, U
     Route: 065
     Dates: start: 2005
  3. LAMICTAL [Suspect]
     Active Substance: LAMOTRIGINE
     Indication: TREMOR
  4. LAMOTRIGINE. [Suspect]
     Active Substance: LAMOTRIGINE
     Indication: SEIZURE
     Dosage: UNK, U
     Route: 065

REACTIONS (6)
  - Nausea [Unknown]
  - Drug dose omission [Unknown]
  - Dizziness [Unknown]
  - Surgery [Unknown]
  - Headache [Unknown]
  - Drug ineffective [Unknown]
